FAERS Safety Report 5249992-1 (Version None)
Quarter: 2007Q1

REPORT INFORMATION
  Report Type: 
  Country: None (occurrence: None)
  Receive Date: 20061201
  Receipt Date: 20060821
  Transmission Date: 20070707
  Serious: No
  Sender: FDA-Public Use
  Company Number: 2006PV019866

PATIENT
  Age: 57 Year
  Sex: Female
  Weight: 81.1939 kg

DRUGS (2)
  1. BYETTA [Suspect]
     Indication: INSULIN RESISTANCE
     Dosage: 5 MCG BID SC
     Route: 058
     Dates: start: 20060301
  2. METFORMIN HCL [Concomitant]

REACTIONS (2)
  - INJECTION SITE URTICARIA [None]
  - THERAPEUTIC RESPONSE UNEXPECTED [None]
